FAERS Safety Report 8855926 (Version 1)
Quarter: 2012Q4

REPORT INFORMATION
  Report Type: 
  Country: US (occurrence: US)
  Receive Date: 20121023
  Receipt Date: 20121023
  Transmission Date: 20130627
  Serious: No
  Sender: FDA-Public Use
  Company Number: US-AMGEN-USASP2012058871

PATIENT
  Age: 43 Year
  Sex: Male
  Weight: 74.83 kg

DRUGS (6)
  1. ENBREL [Suspect]
     Indication: PRODUCT USED FOR UNKNOWN INDICATION
     Dosage: 50 mg, qwk
     Route: 058
  2. LIPITOR [Concomitant]
     Dosage: 20 mg, UNK
  3. JANUMET [Concomitant]
     Dosage: 50-500 mg
  4. RAMIPRIL [Concomitant]
     Dosage: 10 mg, UNK
  5. VITAMIN C                          /00008001/ [Concomitant]
     Dosage: 500 mg, UNK
  6. ALEVE [Concomitant]
     Dosage: 220 mg, UNK

REACTIONS (1)
  - Injection site pruritus [Recovered/Resolved]
